FAERS Safety Report 5064947-8 (Version None)
Quarter: 2006Q3

REPORT INFORMATION
  Report Type: 
  Country: None (occurrence: None)
  Receive Date: 20060727
  Receipt Date: 20060727
  Transmission Date: 20061208
  Serious: Yes (Hospitalization)
  Sender: FDA-Public Use
  Company Number: None

PATIENT
  Age: 81 Year
  Sex: Female
  Weight: 57.6068 kg

DRUGS (1)
  1. FLEET'S PHOSPHO SODA SOLUTION   45ML    C.B. FLEET CO. INC. [Suspect]
     Indication: COLONOSCOPY
     Dosage: 45ML  PM AND AM  PO
     Route: 048
     Dates: start: 20060619, end: 20060620

REACTIONS (1)
  - RENAL FAILURE ACUTE [None]
